FAERS Safety Report 5350113-5 (Version None)
Quarter: 2007Q2

REPORT INFORMATION
  Report Type: 
  Country: None (occurrence: None)
  Receive Date: 20070521
  Receipt Date: 20070205
  Transmission Date: 20071010
  Serious: No
  Sender: FDA-Public Use
  Company Number: WAES 0701USA02437

PATIENT
  Age: 60 Year
  Sex: Male
  Weight: 107.0489 kg

DRUGS (6)
  1. JANUVIA [Suspect]
     Indication: DIABETES MELLITUS NON-INSULIN-DEPENDENT
     Dosage: 100 MG/DAILY/PO
     Route: 048
     Dates: start: 20061031, end: 20061211
  2. AVANDIA [Concomitant]
  3. GLYNASE [Concomitant]
  4. LANOXIN [Concomitant]
  5. VYTORIN [Concomitant]
  6. METFORMIN HCL [Concomitant]

REACTIONS (3)
  - CONSTIPATION [None]
  - OEDEMA PERIPHERAL [None]
  - PARAESTHESIA [None]
